FAERS Safety Report 5243685-2 (Version None)
Quarter: 2007Q1

REPORT INFORMATION
  Report Type: 
  Country: None (occurrence: None)
  Receive Date: 20070220
  Receipt Date: 20070220
  Transmission Date: 20070707
  Serious: No
  Sender: FDA-Public Use
  Company Number: None

PATIENT
  Sex: Female
  Weight: 77.1115 kg

DRUGS (1)
  1. RISPERDAL [Suspect]
     Indication: PSYCHOTIC DISORDER
     Dosage: 6 MG 2X DAILY PO
     Route: 048
     Dates: start: 19940401, end: 20070216

REACTIONS (2)
  - FAECAL INCONTINENCE [None]
  - URINARY INCONTINENCE [None]
